FAERS Safety Report 9248697 (Version 4)
Quarter: 2014Q1

REPORT INFORMATION
  Report Type: Report from Study
  Country: US (occurrence: US)
  Receive Date: 20130423
  Receipt Date: 20140313
  Transmission Date: 20141002
  Serious: Yes (Death, Hospitalization)
  Sender: FDA-Public Use
  Company Number: US-SANOFI-AVENTIS-2013SA040517

PATIENT
  Age: 63 Year
  Sex: Female

DRUGS (1)
  1. AUBAGIO [Suspect]
     Indication: MULTIPLE SCLEROSIS
     Dosage: THERAPY START DATE - 3 MONTHS AGO
     Route: 048
     Dates: start: 201303

REACTIONS (7)
  - Cardiac arrest [Fatal]
  - Blood potassium decreased [Unknown]
  - Blood sodium decreased [Unknown]
  - Sleep disorder [Not Recovered/Not Resolved]
  - Local swelling [Unknown]
  - Paraesthesia [Not Recovered/Not Resolved]
  - Drug dose omission [Unknown]
